FAERS Safety Report 9306228 (Version 8)
Quarter: 2014Q1

REPORT INFORMATION
  Report Type: Spontaneous
  Country: US (occurrence: US)
  Receive Date: 20130523
  Receipt Date: 20140319
  Transmission Date: 20141002
  Serious: Yes (Hospitalization, Other)
  Sender: FDA-Public Use
  Company Number: US-JNJFOC-20130513461

PATIENT
  Age: 3 Year
  Sex: Female
  Weight: 59.88 kg

DRUGS (3)
  1. CHILDREN^S TYLENOL [Suspect]
     Route: 048
  2. CHILDREN^S TYLENOL [Suspect]
     Indication: VIRAL INFECTION
     Route: 048
     Dates: start: 200209, end: 20020930
  3. CHILDREN^S TYLENOL COLD [Suspect]
     Indication: COUGH
     Route: 048
     Dates: start: 200209, end: 20020930

REACTIONS (7)
  - Acute hepatic failure [Recovered/Resolved]
  - Anxiety [Unknown]
  - Rash macular [Unknown]
  - Injury [Unknown]
  - Extra dose administered [Unknown]
  - Lung abscess [Unknown]
  - Pneumonia [Unknown]
